FAERS Safety Report 6336115-0 (Version None)
Quarter: 2009Q3

REPORT INFORMATION
  Report Type: 
  Country: None (occurrence: None)
  Receive Date: 20090828
  Receipt Date: 20090818
  Transmission Date: 20100115
  Serious: Yes (Disabling)
  Sender: FDA-Public Use
  Company Number: ADR14522009

PATIENT
  Age: 70 Year
  Sex: Male

DRUGS (6)
  1. CITALOPRAM HYDROBROMIDE [Suspect]
     Indication: DEPRESSION
     Dosage: 20MG
     Route: 048
     Dates: start: 20080530, end: 20080610
  2. BENDROFLUAZIDE [Concomitant]
  3. DIAZEPAM [Concomitant]
  4. FELODIPINE [Concomitant]
  5. PERINDOPRIL [Concomitant]
  6. SIMVASTATIN [Concomitant]

REACTIONS (5)
  - CONFUSIONAL STATE [None]
  - MYOCLONUS [None]
  - RESTLESSNESS [None]
  - TREMOR [None]
  - URINARY INCONTINENCE [None]
